FAERS Safety Report 7451460-3 (Version None)
Quarter: 2011Q2

REPORT INFORMATION
  Report Type: 
  Country: None (occurrence: None)
  Receive Date: 20110502
  Receipt Date: 20110425
  Transmission Date: 20111010
  Serious: Yes (Hospitalization)
  Sender: FDA-Public Use
  Company Number: A0925020A

PATIENT
  Age: 46 Year
  Sex: Female

DRUGS (1)
  1. IMITREX [Suspect]
     Dosage: 100MG UNKNOWN
     Route: 065
     Dates: start: 20100929

REACTIONS (3)
  - CEREBRAL HAEMORRHAGE [None]
  - AMNESIA [None]
  - ROAD TRAFFIC ACCIDENT [None]
